FAERS Safety Report 9708154 (Version 2)
Quarter: 2013Q4

REPORT INFORMATION
  Report Type: Spontaneous
  Country: US (occurrence: US)
  Receive Date: 20131125
  Receipt Date: 20131219
  Transmission Date: 20140711
  Serious: No
  Sender: FDA-Public Use
  Company Number: US-PFIZER INC-2013331844

PATIENT
  Age: 48 Year
  Sex: Female
  Weight: 68.03 kg

DRUGS (1)
  1. ADVIL [Suspect]
     Indication: PAIN
     Dosage: 400 MG, TWO TIMES A DAY
     Route: 048
     Dates: start: 20131110

REACTIONS (6)
  - Drug ineffective [Not Recovered/Not Resolved]
  - Tooth disorder [Unknown]
  - Agitation [Not Recovered/Not Resolved]
  - Feeling jittery [Not Recovered/Not Resolved]
  - Anxiety [Not Recovered/Not Resolved]
  - Malaise [Not Recovered/Not Resolved]
